FAERS Safety Report 19767951 (Version 1)
Quarter: 2021Q3

REPORT INFORMATION
  Report Type: Spontaneous
  Country: US (occurrence: US)
  Receive Date: 20210826
  Receipt Date: 20210826
  Transmission Date: 20211014
  Serious: No
  Sender: FDA-Public Use
  Company Number: None

PATIENT
  Age: 77 Year
  Sex: Male

DRUGS (1)
  1. TREMFYA [Suspect]
     Active Substance: GUSELKUMAB
     Indication: PSORIASIS
     Dosage: ?          OTHER FREQUENCY:EVERY 2 MONTHS;?
     Route: 058
     Dates: start: 202004

REACTIONS (6)
  - Injection site swelling [None]
  - Burning sensation [None]
  - Injection site pain [None]
  - Skin exfoliation [None]
  - Drug ineffective [None]
  - Injection site pruritus [None]

NARRATIVE: CASE EVENT DATE: 20210617
